FAERS Safety Report 8576217-1 (Version None)
Quarter: 2012Q3

REPORT INFORMATION
  Report Type: 
  Country: None (occurrence: None)
  Receive Date: 20120724
  Receipt Date: 20120711
  Transmission Date: 20120928
  Serious: Yes (Hospitalization)
  Sender: FDA-Public Use
  Company Number: 1347202

PATIENT
  Age: 34 Year
  Sex: Male

DRUGS (4)
  1. DOXORUBICIN HYDROCHLORIDE [Concomitant]
  2. VINCRISTINE SULFATE [Concomitant]
  3. METHOTREXATE [Suspect]
     Dosage: 30MG, INTRATHECAL, 30MG, 30MG
     Route: 037
  4. MERCAPTOPURINE [Concomitant]

REACTIONS (5)
  - INCORRECT DOSE ADMINISTERED [None]
  - FEBRILE NEUTROPENIA [None]
  - DRUG DISPENSING ERROR [None]
  - MUCOSAL INFLAMMATION [None]
  - PANCYTOPENIA [None]
